FAERS Safety Report 23670502 (Version 1)
Quarter: 2024Q1

REPORT INFORMATION
  Report Type: Other
  Country: US (occurrence: None)
  Receive Date: 20240326
  Receipt Date: 20240326
  Transmission Date: 20240410
  Serious: Yes (Hospitalization, Other)
  Sender: FDA-Public Use
  Company Number: US-ROCHE-3527014

PATIENT
  Age: 69 Year
  Sex: Male
  Weight: 115.32 kg

DRUGS (4)
  1. OCREVUS [Suspect]
     Active Substance: OCRELIZUMAB
     Indication: Secondary progressive multiple sclerosis
     Route: 042
     Dates: start: 2017, end: 20230613
  2. AMLODIPINE [Concomitant]
     Active Substance: AMLODIPINE BESYLATE
     Indication: Hypertension
     Route: 048
     Dates: start: 202206
  3. LISINOPRIL [Concomitant]
     Active Substance: LISINOPRIL
     Indication: Hypertension
     Dates: start: 202208
  4. PRADAXA [Concomitant]
     Active Substance: DABIGATRAN ETEXILATE MESYLATE
     Route: 048
     Dates: start: 201710

REACTIONS (8)
  - Stenosis [Recovered/Resolved]
  - Pain [Recovered/Resolved]
  - Back disorder [Recovered/Resolved]
  - Urinary tract infection [Recovered/Resolved]
  - Hypoacusis [Not Recovered/Not Resolved]
  - Sudden hearing loss [Not Recovered/Not Resolved]
  - Gait disturbance [Recovering/Resolving]
  - Back disorder [Recovered/Resolved]

NARRATIVE: CASE EVENT DATE: 20230101
